FAERS Safety Report 4827287-5 (Version None)
Quarter: 2005Q4

REPORT INFORMATION
  Report Type: 
  Country: None (occurrence: None)
  Receive Date: 20051014
  Receipt Date: 20050802
  Transmission Date: 20060501
  Serious: No
  Sender: FDA-Public Use
  Company Number: 2005SP002204

PATIENT
  Age: 68 Year
  Sex: Female
  Weight: 61.2356 kg

DRUGS (6)
  1. LUNESTA [Suspect]
     Indication: SLEEP DISORDER
     Dosage: 1 MG; HS; ORAL
     Route: 048
     Dates: start: 20050728, end: 20050728
  2. VITAMIN B-12 [Concomitant]
  3. SALICYLATES [Concomitant]
  4. VITAMIN B6 [Concomitant]
  5. VITAMIN E [Concomitant]
  6. CALCIUM GLUCONATE [Concomitant]

REACTIONS (3)
  - CRYING [None]
  - HYPERSOMNIA [None]
  - IMPAIRED DRIVING ABILITY [None]
